FAERS Safety Report 24955215 (Version 2)
Quarter: 2025Q1

REPORT INFORMATION
  Report Type: Spontaneous
  Country: US (occurrence: US)
  Receive Date: 20250211
  Receipt Date: 20250213
  Transmission Date: 20250409
  Serious: No
  Sender: DAIICHI
  Company Number: US-DAIICHI SANKYO, INC.-DS-2025-124540-USAA

PATIENT
  Sex: Female

DRUGS (3)
  1. ENHERTU [Suspect]
     Active Substance: FAM-TRASTUZUMAB DERUXTECAN-NXKI
     Indication: Product used for unknown indication
     Route: 065
  2. XELODA [Suspect]
     Active Substance: CAPECITABINE
     Indication: Product used for unknown indication
     Route: 065
  3. TUKYSA [Suspect]
     Active Substance: TUCATINIB
     Indication: Product used for unknown indication
     Dosage: 150 MG, BID
     Route: 048

REACTIONS (5)
  - Drug intolerance [Unknown]
  - Adverse drug reaction [Unknown]
  - Drug hypersensitivity [Unknown]
  - Rash [Unknown]
  - Off label use [Unknown]
